FAERS Safety Report 15957727 (Version 1)
Quarter: 2019Q1

REPORT INFORMATION
  Report Type: Spontaneous
  Country: US (occurrence: US)
  Receive Date: 20190213
  Receipt Date: 20190213
  Transmission Date: 20190417
  Serious: No
  Sender: FDA-Public Use
  Company Number: US-NEXGEN PHARMA, INC.-2062626

PATIENT
  Age: 41 Year
  Sex: Female

DRUGS (2)
  1. CHENODAL [Suspect]
     Active Substance: CHENODIOL
     Indication: LIPID METABOLISM DISORDER
     Route: 048
     Dates: start: 20160211
  2. DEXILANT [Suspect]
     Active Substance: DEXLANSOPRAZOLE
     Dates: start: 2010

REACTIONS (3)
  - Drug interaction [Unknown]
  - Oesophageal disorder [Recovering/Resolving]
  - Product physical issue [None]
